FAERS Safety Report 8764818 (Version 2)
Quarter: 2012Q4

REPORT INFORMATION
  Report Type: 
  Country: US (occurrence: US)
  Receive Date: 20120831
  Receipt Date: 20121016
  Transmission Date: 20130627
  Serious: Yes (Death, Hospitalization, Other)
  Sender: FDA-Public Use
  Company Number: US-ACTELION-A-US2012-70618

PATIENT
  Age: 61 Year
  Sex: Male

DRUGS (16)
  1. TRACLEER [Suspect]
     Indication: PULMONARY ARTERIAL HYPERTENSION
     Dosage: 62.5 mg, bid
     Route: 048
     Dates: start: 20090116, end: 20120822
  2. WARFARIN [Concomitant]
  3. ALLOPURINOL [Concomitant]
  4. FLUOXETINE [Concomitant]
  5. FUROSEMIDE [Concomitant]
  6. SPIRIVA HANDIHALER [Concomitant]
  7. ADVAIR [Concomitant]
  8. METFORMIN [Concomitant]
  9. HYDROCODONE BITARTRATE AND ACETAMINOPHEN [Concomitant]
  10. JANUVIA [Concomitant]
  11. METHOCARBAMOL [Concomitant]
  12. FENOFIBRATE [Concomitant]
  13. HYDROXYZINE HCL [Concomitant]
  14. TRIAMTERENE [Concomitant]
  15. LANTUS [Concomitant]
  16. CENTRUM SILVER [Concomitant]

REACTIONS (11)
  - Infection [Fatal]
  - Osteomyelitis [Recovered/Resolved]
  - Toe amputation [Recovered/Resolved]
  - Cellulitis [Recovered/Resolved]
  - Pulmonary embolism [Recovered/Resolved]
  - Deep vein thrombosis [Recovered/Resolved]
  - Vena cava filter insertion [Recovered/Resolved]
  - Hyperparathyroidism [Recovered/Resolved]
  - Parathyroid tumour benign [Recovered/Resolved]
  - Renal failure [Recovered/Resolved]
  - Blood pressure decreased [Unknown]
